FAERS Safety Report 5463382-8 (Version None)
Quarter: 2007Q3

REPORT INFORMATION
  Report Type: 
  Country: None (occurrence: None)
  Receive Date: 20070920
  Receipt Date: 20070910
  Transmission Date: 20080115
  Serious: Yes (Death)
  Sender: FDA-Public Use
  Company Number: JP-SANOFI-SYNTHELABO-A01200710469

PATIENT
  Age: 32 Year
  Sex: Male

DRUGS (5)
  1. BEVACIZUMAB [Suspect]
     Dosage: UNK
     Route: 041
     Dates: start: 20070903, end: 20070903
  2. LEUCOVORIN CALCIUM [Suspect]
     Dosage: UNK
     Route: 041
     Dates: start: 20070903, end: 20070903
  3. FLUOROURACIL [Suspect]
     Dosage: UNK
     Route: 040
     Dates: start: 20070903, end: 20070903
  4. FLUOROURACIL [Suspect]
     Dosage: UNK
     Route: 041
     Dates: start: 20070903, end: 20070904
  5. OXALIPLATIN [Suspect]
     Indication: LARGE INTESTINE CARCINOMA
     Dosage: UNK
     Route: 041
     Dates: start: 20070903, end: 20070903

REACTIONS (1)
  - PULMONARY THROMBOSIS [None]
